FAERS Safety Report 11545336 (Version 1)
Quarter: 2015Q3

REPORT INFORMATION
  Report Type: Spontaneous
  Country: US (occurrence: US)
  Receive Date: 20150924
  Receipt Date: 20150924
  Transmission Date: 20151125
  Serious: Yes (Other)
  Sender: FDA-Public Use
  Company Number: US-CELGENE-USA-2015092949

PATIENT

DRUGS (1)
  1. ABRAXANE [Suspect]
     Active Substance: PACLITAXEL
     Indication: NON-SMALL CELL LUNG CANCER
     Route: 041

REACTIONS (6)
  - Leukopenia [Unknown]
  - Decreased appetite [Unknown]
  - Neutropenia [Unknown]
  - Traumatic lung injury [Unknown]
  - Fatigue [Unknown]
  - Neurotoxicity [Unknown]
